FAERS Safety Report 11485551 (Version 2)
Quarter: 2015Q4

REPORT INFORMATION
  Report Type: Report from Study
  Country: US (occurrence: US)
  Receive Date: 20150909
  Receipt Date: 20151102
  Transmission Date: 20160304
  Serious: Yes (Other)
  Sender: FDA-Public Use
  Company Number: PHEH2015US017539

PATIENT
  Age: 41 Year
  Sex: Female
  Weight: 49.43 kg

DRUGS (2)
  1. GILENYA [Suspect]
     Active Substance: FINGOLIMOD HYDROCHLORIDE
     Indication: MULTIPLE SCLEROSIS
     Dosage: 0.5 MG, QD
     Route: 048
     Dates: start: 20130114
  2. GILENYA [Suspect]
     Active Substance: FINGOLIMOD HYDROCHLORIDE
     Dosage: 0.5 MG, QD
     Route: 048
     Dates: start: 20140723

REACTIONS (7)
  - Multiple sclerosis [Unknown]
  - Gait disturbance [Unknown]
  - Thrombosis [Unknown]
  - Haemorrhagic diathesis [Unknown]
  - Balance disorder [Unknown]
  - Fatigue [Unknown]
  - Lymphopenia [Unknown]

NARRATIVE: CASE EVENT DATE: 20140423
